FAERS Safety Report 24202855 (Version 1)
Quarter: 2024Q3

REPORT INFORMATION
  Report Type: Report from Study
  Country: US (occurrence: US)
  Receive Date: 20240813
  Receipt Date: 20240813
  Transmission Date: 20241016
  Serious: Yes (Death, Other)
  Sender: ACADIA PHARMACEUTICALS
  Company Number: US-ACADIA PHARMACEUTICALS INC.-ACA-2024-PIM-003819

PATIENT
  Age: 75 Year
  Sex: Male

DRUGS (18)
  1. NUPLAZID [Suspect]
     Active Substance: PIMAVANSERIN TARTRATE
     Indication: Parkinson^s disease
     Dosage: 34 MILLIGRAM, QD, EVERY MORNING
     Route: 048
     Dates: start: 202102
  2. MAGNESIUM + VITAMIN D3 WITH TURMERIC [Concomitant]
  3. ACID CONTROLLER [Concomitant]
     Active Substance: FAMOTIDINE
  4. CALCIUM CARBONATE\CHOLECALCIFEROL [Concomitant]
     Active Substance: CALCIUM CARBONATE\CHOLECALCIFEROL
  5. B12 ACTIVE [Concomitant]
  6. MUCINEX [Concomitant]
     Active Substance: GUAIFENESIN
  7. XANAX [Concomitant]
     Active Substance: ALPRAZOLAM
  8. FLECAINIDE ACETATE [Concomitant]
     Active Substance: FLECAINIDE ACETATE
  9. DROXIDOPA [Concomitant]
     Active Substance: DROXIDOPA
  10. OLANZAPINE [Concomitant]
     Active Substance: OLANZAPINE
  11. CALCIUM [Concomitant]
     Active Substance: CALCIUM
  12. RYTARY [Concomitant]
     Active Substance: CARBIDOPA\LEVODOPA
  13. NORTHERA [Concomitant]
     Active Substance: DROXIDOPA
  14. CARBIDOPA\LEVODOPA [Concomitant]
     Active Substance: CARBIDOPA\LEVODOPA
  15. FLUDROCORTISONE ACETATE [Concomitant]
     Active Substance: FLUDROCORTISONE ACETATE
  16. MIDODRINE HYDROCHLORIDE [Concomitant]
     Active Substance: MIDODRINE HYDROCHLORIDE
  17. MAGNESIUM GLUCONATE [Concomitant]
     Active Substance: MAGNESIUM GLUCONATE
  18. FISH OIL [Concomitant]
     Active Substance: FISH OIL

REACTIONS (1)
  - Death [Fatal]

NARRATIVE: CASE EVENT DATE: 20240711
